FAERS Safety Report 10102714 (Version 2)
Quarter: 2014Q2

REPORT INFORMATION
  Report Type: Other
  Country: US (occurrence: US)
  Receive Date: 20140424
  Receipt Date: 20140624
  Transmission Date: 20141212
  Serious: Yes (Death, Hospitalization, Other)
  Sender: FDA-Public Use
  Company Number: US-GSKPPD-2014GSK000325

PATIENT
  Age: 86 Year
  Sex: Female

DRUGS (5)
  1. AVANDIA [Suspect]
     Indication: DIABETES MELLITUS
     Dosage: DATE OF AVANDIA USE COULD NOT BE CONFIRMED IN RECORDS REVIEWED.
     Route: 048
  2. LOTENSIN [Concomitant]
  3. CARTIA XT [Concomitant]
  4. METOPROLOL [Concomitant]
  5. NITROGLYCERINE [Concomitant]

REACTIONS (2)
  - Myocardial infarction [Recovered/Resolved]
  - Cardiac failure congestive [Fatal]
